FAERS Safety Report 7834094-8 (Version None)
Quarter: 2011Q4

REPORT INFORMATION
  Report Type: 
  Country: None (occurrence: None)
  Receive Date: 20111024
  Receipt Date: 20111024
  Transmission Date: 20120403
  Serious: Yes (Other)
  Sender: FDA-Public Use
  Company Number: None

PATIENT
  Age: 65 Year
  Sex: Male
  Weight: 79.378 kg

DRUGS (5)
  1. TRUVADA [Concomitant]
  2. ACYCLOVIR [Concomitant]
  3. SELZENTRY [Suspect]
     Indication: HIV INFECTION
     Dosage: 1 TABLET
     Route: 048
  4. ISENTRESS [Concomitant]
  5. GEMFIBROZIL [Concomitant]

REACTIONS (4)
  - DISCOMFORT [None]
  - PAIN IN EXTREMITY [None]
  - ARTHRALGIA [None]
  - INITIAL INSOMNIA [None]
